FAERS Safety Report 10235485 (Version 1)
Quarter: 2014Q2

REPORT INFORMATION
  Report Type: Spontaneous
  Country: FR (occurrence: FR)
  Receive Date: 20140613
  Receipt Date: 20140613
  Transmission Date: 20141212
  Serious: Yes (Other)
  Sender: FDA-Public Use
  Company Number: FR-SA-2014SA077706

PATIENT
  Age: 25 Year
  Sex: Male

DRUGS (6)
  1. THYMOGLOBULIN [Suspect]
     Indication: RENAL TRANSPLANT
     Route: 065
  2. CEFTRIAXONE [Concomitant]
     Indication: RENAL TRANSPLANT
  3. GENTAMICIN [Concomitant]
     Indication: RENAL TRANSPLANT
  4. OMEPRAZOLE [Concomitant]
     Indication: RENAL TRANSPLANT
  5. VITAMIN C [Concomitant]
     Indication: RENAL TRANSPLANT
  6. MYCOPHENOLATE MOFETIL [Concomitant]
     Indication: RENAL TRANSPLANT

REACTIONS (3)
  - Circulatory collapse [Unknown]
  - Anaphylactic reaction [Unknown]
  - Rash maculo-papular [Unknown]
